FAERS Safety Report 11279328 (Version 1)
Quarter: 2015Q3

REPORT INFORMATION
  Report Type: Report from Study
  Country: GT (occurrence: GT)
  Receive Date: 20150717
  Receipt Date: 20150717
  Transmission Date: 20151125
  Serious: Yes (Hospitalization, Other)
  Sender: FDA-Public Use
  Company Number: GT-ABBVIE-15K-069-1416034-00

PATIENT
  Age: 41 Year
  Sex: Female

DRUGS (1)
  1. HUMIRA [Suspect]
     Active Substance: ADALIMUMAB
     Indication: PSORIATIC ARTHROPATHY
     Route: 058
     Dates: start: 201505, end: 20150619

REACTIONS (8)
  - Vaginal ulceration [Unknown]
  - Herpes virus infection [Unknown]
  - Decubitus ulcer [Not Recovered/Not Resolved]
  - Breast ulceration [Unknown]
  - Skin infection [Not Recovered/Not Resolved]
  - Purulent discharge [Unknown]
  - Renal failure [Not Recovered/Not Resolved]
  - Generalised oedema [Not Recovered/Not Resolved]

NARRATIVE: CASE EVENT DATE: 2015
